FAERS Safety Report 7610950-0 (Version None)
Quarter: 2011Q3

REPORT INFORMATION
  Report Type: 
  Country: None (occurrence: None)
  Receive Date: 20110715
  Receipt Date: 20110705
  Transmission Date: 20111222
  Serious: Yes (Other)
  Sender: FDA-Public Use
  Company Number: PHHY2011JP42463

PATIENT
  Sex: Female
  Weight: 34 kg

DRUGS (4)
  1. ZOMETA [Suspect]
     Indication: METASTASES TO BONE
     Dosage: 4 MG, ONCE EVERY MONTH
     Route: 041
     Dates: start: 20080926
  2. LENDORMIN [Concomitant]
     Indication: INSOMNIA
     Dosage: 1 DF, UNK
     Route: 048
  3. MAGNESIUM OXIDE [Concomitant]
     Indication: CONSTIPATION
     Dosage: 1.5 G, UNK
     Route: 048
  4. NOLVADEX [Concomitant]
     Indication: BREAST CANCER
     Dosage: 2 DF, UNK
     Route: 048

REACTIONS (5)
  - OSTEONECROSIS OF JAW [None]
  - DYSKINESIA [None]
  - PAIN IN JAW [None]
  - EXPOSED BONE IN JAW [None]
  - BONE LESION [None]
